FAERS Safety Report 6839540-4 (Version None)
Quarter: 2010Q3

REPORT INFORMATION
  Report Type: 
  Country: None (occurrence: None)
  Receive Date: 20100714
  Receipt Date: 20100105
  Transmission Date: 20110219
  Serious: No
  Sender: FDA-Public Use
  Company Number: A0837721A

PATIENT
  Age: 29 Year
  Sex: Male

DRUGS (3)
  1. FLOVENT [Suspect]
     Indication: PRODUCT USED FOR UNKNOWN INDICATION
     Dosage: 2PUFF TWICE PER DAY
     Route: 055
     Dates: start: 20091222, end: 20100104
  2. ZITHROMAX [Concomitant]
  3. PROAIR HFA [Concomitant]

REACTIONS (14)
  - CHEST DISCOMFORT [None]
  - DIZZINESS [None]
  - DROOLING [None]
  - DRY MOUTH [None]
  - DYSARTHRIA [None]
  - DYSGEUSIA [None]
  - DYSPHEMIA [None]
  - DYSPNOEA [None]
  - EYE ROLLING [None]
  - HYPERTENSION [None]
  - HYPOAESTHESIA [None]
  - MUSCLE SPASMS [None]
  - PARAESTHESIA [None]
  - TREMOR [None]
